FAERS Safety Report 9617521 (Version 1)
Quarter: 2013Q4

REPORT INFORMATION
  Report Type: Spontaneous
  Country: JP (occurrence: JP)
  Receive Date: 20131011
  Receipt Date: 20131011
  Transmission Date: 20140711
  Serious: Yes (Hospitalization)
  Sender: FDA-Public Use
  Company Number: JP-GLAXOSMITHKLINE-B0923216A

PATIENT
  Age: 52 Year
  Sex: Male

DRUGS (6)
  1. VALTREX [Suspect]
     Indication: HERPES ZOSTER
     Dosage: 1000MG THREE TIMES PER DAY
     Route: 048
     Dates: start: 20130909, end: 20130910
  2. ZOVIRAX [Suspect]
     Indication: HERPES ZOSTER
     Dosage: 250MG PER DAY
     Route: 042
     Dates: start: 20130909, end: 20130909
  3. METHYCOBAL [Concomitant]
     Indication: PERIPHERAL NERVE INJURY
     Dosage: 250MCG THREE TIMES PER DAY
     Route: 048
     Dates: start: 20130909, end: 20130910
  4. NEUROTROPIN [Concomitant]
     Indication: PAIN
     Dosage: 8IUAX TWICE PER DAY
     Route: 048
     Dates: start: 20130909, end: 20130910
  5. PARIET [Concomitant]
     Indication: PROPHYLAXIS AGAINST GASTROINTESTINAL ULCER
     Dosage: 10MG PER DAY
     Route: 048
     Dates: start: 20130909, end: 20130910
  6. LOXONIN [Concomitant]
     Indication: PAIN
     Dosage: 60MG THREE TIMES PER DAY
     Route: 048
     Dates: start: 20130909, end: 20130910

REACTIONS (4)
  - Blood urea increased [Recovered/Resolved]
  - Blood creatinine increased [Recovered/Resolved]
  - Renal disorder [Unknown]
  - Renal impairment [Unknown]
